FAERS Safety Report 17463492 (Version 5)
Quarter: 2021Q1

REPORT INFORMATION
  Report Type: Report from Study
  Country: DE (occurrence: DE)
  Receive Date: 20200226
  Receipt Date: 20210212
  Transmission Date: 20210419
  Serious: Yes (Hospitalization)
  Sender: FDA-Public Use
  Company Number: DE-MYLANLABS-2020M1020608

PATIENT
  Age: 70 Year
  Sex: Male

DRUGS (16)
  1. FAMPYRA [Suspect]
     Active Substance: DALFAMPRIDINE
     Indication: PRODUCT USED FOR UNKNOWN INDICATION
     Dosage: 2 DOSAGE FORM, QD(1?0?1)
     Route: 065
  2. FAMPYRA [Suspect]
     Active Substance: DALFAMPRIDINE
     Dosage: UNK (0.5 DAY) (1?0?1)
     Route: 065
  3. DOXEPIN [Suspect]
     Active Substance: DOXEPIN
     Indication: PRODUCT USED FOR UNKNOWN INDICATION
     Dosage: 50 MILLIGRAM, QD
     Route: 065
  4. OCREVUS [Suspect]
     Active Substance: OCRELIZUMAB
     Dosage: 600 MILLIGRAM (156 DAYS)
     Route: 042
     Dates: start: 20181126
  5. AMANTADIN                          /00055901/ [Concomitant]
     Active Substance: AMANTADINE
     Dosage: 100 MILLIGRAM (0.5 DAY)
  6. DOXEPIN [Suspect]
     Active Substance: DOXEPIN
     Dosage: 50 MILLIGRAM (0.5 DAY) (0?0?2)
     Route: 065
  7. OCREVUS [Suspect]
     Active Substance: OCRELIZUMAB
     Indication: PRIMARY PROGRESSIVE MULTIPLE SCLEROSIS
     Dosage: 300 MILLIGRAM
     Route: 042
     Dates: start: 20180613
  8. OCREVUS [Suspect]
     Active Substance: OCRELIZUMAB
     Dosage: 600 MILLIGRAM(2ND MAINTENANCE DOSE)
     Route: 042
     Dates: start: 201905
  9. FAMPYRA [Suspect]
     Active Substance: DALFAMPRIDINE
     Dosage: 10 MILLIGRAM, BID(1?0?1)
     Route: 065
  10. NEUPRO [Concomitant]
     Active Substance: ROTIGOTINE
     Dosage: UNK
     Route: 065
  11. AMANTADIN                          /00055901/ [Concomitant]
     Active Substance: AMANTADINE
     Dosage: 200 MILLIGRAM, QD
     Route: 065
  12. LEVODOPA [Concomitant]
     Active Substance: LEVODOPA
     Dosage: 1 DOSAGE FORM, QD
     Route: 065
  13. OCREVUS [Suspect]
     Active Substance: OCRELIZUMAB
     Dosage: 600 MILLIGRAM
     Route: 042
     Dates: start: 202010
  14. DOXEPIN [Suspect]
     Active Substance: DOXEPIN
     Dosage: 100 MILLIGRAM, QD(0?0?2)
     Route: 065
  15. OCREVUS [Suspect]
     Active Substance: OCRELIZUMAB
     Dosage: 600 MILLIGRAM
     Route: 042
     Dates: start: 202004
  16. TAMSULOSIN [Concomitant]
     Active Substance: TAMSULOSIN
     Dosage: 0.4 MILLIGRAM, QD
     Route: 065

REACTIONS (9)
  - Rib fracture [Recovered/Resolved]
  - Gallbladder cancer [Recovered/Resolved]
  - Muscular weakness [Recovered/Resolved]
  - Bladder cyst [Not Recovered/Not Resolved]
  - Bladder cancer [Not Recovered/Not Resolved]
  - Pain in extremity [Recovered/Resolved]
  - Headache [Recovered/Resolved]
  - Fall [Unknown]
  - Initial insomnia [Not Recovered/Not Resolved]

NARRATIVE: CASE EVENT DATE: 20180613
